FAERS Safety Report 16116572 (Version 1)
Quarter: 2019Q1

REPORT INFORMATION
  Report Type: Spontaneous
  Country: GB (occurrence: GB)
  Receive Date: 20190326
  Receipt Date: 20190326
  Transmission Date: 20190418
  Serious: Yes (Hospitalization)
  Sender: FDA-Public Use
  Company Number: GB-ACCORD-114090

PATIENT
  Age: 92 Year
  Sex: Female

DRUGS (5)
  1. FERROUS FUMARATE [Concomitant]
     Active Substance: FERROUS FUMARATE
  2. CARBOCISTEINE [Concomitant]
     Active Substance: CARBOCYSTEINE
     Indication: LOWER RESPIRATORY TRACT INFECTION
     Dosage: 250MG/5ML
     Route: 048
     Dates: start: 20180919
  3. AMLODIPINE [Suspect]
     Active Substance: AMLODIPINE BESYLATE
     Indication: PRODUCT USED FOR UNKNOWN INDICATION
     Dosage: EVERY MORNING
     Route: 048
     Dates: end: 20181114
  4. BENZYDAMINE [Concomitant]
     Active Substance: BENZYDAMINE
     Dosage: ALSO RECEIVED OROMUCOSAL SPRAY
  5. MOMETASONE [Concomitant]
     Active Substance: MOMETASONE

REACTIONS (4)
  - Blood pressure diastolic decreased [Unknown]
  - Vomiting [Unknown]
  - Loss of consciousness [Unknown]
  - Syncope [Recovered/Resolved]
